FAERS Safety Report 20752583 (Version 1)
Quarter: 2022Q2

REPORT INFORMATION
  Report Type: Spontaneous
  Country: US (occurrence: None)
  Receive Date: 20220426
  Receipt Date: 20220426
  Transmission Date: 20220721
  Serious: No
  Sender: FDA-Public Use
  Company Number: US-ROCHE-2875534

PATIENT
  Age: 76 Year
  Sex: Male

DRUGS (1)
  1. ESBRIET [Suspect]
     Active Substance: PIRFENIDONE
     Indication: Idiopathic pulmonary fibrosis
     Dosage: PRESENT
     Route: 048
     Dates: start: 201909

REACTIONS (3)
  - Weight decreased [Unknown]
  - Muscle atrophy [Unknown]
  - Asthenia [Unknown]

NARRATIVE: CASE EVENT DATE: 20200721
